FAERS Safety Report 17767293 (Version 2)
Quarter: 2020Q2

REPORT INFORMATION
  Report Type: Spontaneous
  Country: US (occurrence: US)
  Receive Date: 20200511
  Receipt Date: 20200529
  Transmission Date: 20200714
  Serious: Yes (Other)
  Sender: FDA-Public Use
  Company Number: US-COVIS PHARMA B.V.-2020COV00177

PATIENT
  Sex: Female
  Weight: 108.84 kg

DRUGS (12)
  1. ZITHROMAX [Suspect]
     Active Substance: AZITHROMYCIN DIHYDRATE
     Dosage: 2 TABS THE FIRST DAY, THEN 1 TABLET DAILYX4 DAYS
     Dates: start: 20200331, end: 20200404
  2. DUONEB [Concomitant]
     Active Substance: ALBUTEROL SULFATE\IPRATROPIUM BROMIDE
     Dosage: UNK, AS NEEDED
  3. ZETONNA [Suspect]
     Active Substance: CICLESONIDE
     Indication: MYCOTIC ALLERGY
  4. ZITHROMAX [Suspect]
     Active Substance: AZITHROMYCIN DIHYDRATE
     Indication: MALAISE
     Dosage: UNK
     Dates: start: 20200317, end: 20200322
  5. VENTOLIN [Concomitant]
     Active Substance: ALBUTEROL SULFATE
     Dosage: 17 G, AS NEEDED
  6. ZETONNA [Suspect]
     Active Substance: CICLESONIDE
     Indication: SEASONAL ALLERGY
  7. ALLEGRA [Concomitant]
     Active Substance: FEXOFENADINE HYDROCHLORIDE
  8. ZETONNA [Suspect]
     Active Substance: CICLESONIDE
     Indication: DUST ALLERGY
     Dosage: 37 ?G INTO EACH NOSTRIL, 1X/DAY
     Route: 045
  9. ZETONNA [Suspect]
     Active Substance: CICLESONIDE
     Indication: SEASONAL ALLERGY
  10. ZITHROMAX [Suspect]
     Active Substance: AZITHROMYCIN DIHYDRATE
     Dosage: UNK
     Dates: start: 20200418, end: 20200422
  11. SYMBICORT [Concomitant]
     Active Substance: BUDESONIDE\FORMOTEROL FUMARATE DIHYDRATE
     Dosage: UNK, 2X/DAY
  12. SINGULAIR [Concomitant]
     Active Substance: MONTELUKAST SODIUM

REACTIONS (16)
  - Weight increased [Not Recovered/Not Resolved]
  - Nasal pruritus [Not Recovered/Not Resolved]
  - Cough [Not Recovered/Not Resolved]
  - Dyspnoea [Recovering/Resolving]
  - Dehydration [Unknown]
  - Unevaluable event [Unknown]
  - Dysphonia [Not Recovered/Not Resolved]
  - Product administration interrupted [Not Recovered/Not Resolved]
  - Pain in extremity [Unknown]
  - Sneezing [Not Recovered/Not Resolved]
  - COVID-19 [Unknown]
  - Malaise [Not Recovered/Not Resolved]
  - Expired product administered [Recovered/Resolved]
  - Nasal discomfort [Not Recovered/Not Resolved]
  - Pyrexia [Unknown]
  - Peripheral swelling [Unknown]

NARRATIVE: CASE EVENT DATE: 2020
